FAERS Safety Report 6075155-6 (Version None)
Quarter: 2009Q1

REPORT INFORMATION
  Report Type: 
  Country: None (occurrence: None)
  Receive Date: 20090210
  Receipt Date: 20090210
  Transmission Date: 20090719
  Serious: No
  Sender: FDA-Public Use
  Company Number: None

PATIENT
  Sex: Male
  Weight: 60 kg

DRUGS (1)
  1. TEMOZOLOMIDE [Suspect]
     Dosage: 1275 MG

REACTIONS (2)
  - INFECTION [None]
  - THROMBOCYTOPENIA [None]
